FAERS Safety Report 20628148 (Version 1)
Quarter: 2022Q1

REPORT INFORMATION
  Report Type: Other
  Country: US (occurrence: None)
  Receive Date: 20220323
  Receipt Date: 20220323
  Transmission Date: 20220423
  Serious: Yes (Hospitalization, Other)
  Sender: FDA-Public Use
  Company Number: US-ROCHE-2508557

PATIENT
  Sex: Female
  Weight: 90.800 kg

DRUGS (24)
  1. XOLAIR [Suspect]
     Active Substance: OMALIZUMAB
     Indication: Asthma
     Dosage: ONGOING: NO
     Route: 058
     Dates: start: 20181217
  2. XOLAIR [Suspect]
     Active Substance: OMALIZUMAB
  3. XOLAIR [Suspect]
     Active Substance: OMALIZUMAB
     Indication: Chronic obstructive pulmonary disease
     Dosage: ONGOING: YES
     Route: 058
     Dates: start: 200909
  4. XOLAIR [Suspect]
     Active Substance: OMALIZUMAB
  5. LOSARTAN [Concomitant]
     Active Substance: LOSARTAN
     Indication: Hypertension
     Route: 048
  6. XOPENEX [Concomitant]
     Active Substance: LEVALBUTEROL HYDROCHLORIDE
     Indication: Asthma
  7. VENTOLIN [Concomitant]
     Active Substance: ALBUTEROL SULFATE
  8. EPIPEN [Concomitant]
     Active Substance: EPINEPHRINE
     Indication: Hypersensitivity
  9. EPIPEN [Concomitant]
     Active Substance: EPINEPHRINE
     Route: 048
  10. TACROLIMUS [Concomitant]
     Active Substance: TACROLIMUS
  11. EUCRISA [Concomitant]
     Active Substance: CRISABOROLE
  12. NOVOLOG [Concomitant]
     Active Substance: INSULIN ASPART
     Indication: Type 1 diabetes mellitus
     Dosage: SLIDING SCALE
  13. CARVEDILOL [Concomitant]
     Active Substance: CARVEDILOL
     Indication: Hypertension
     Route: 048
  14. CARVEDILOL [Concomitant]
     Active Substance: CARVEDILOL
     Route: 048
  15. LEVEMIR [Concomitant]
     Active Substance: INSULIN DETEMIR
  16. FUROSEMIDE [Concomitant]
     Active Substance: FUROSEMIDE
  17. THEOPHYLLINE [Concomitant]
     Active Substance: THEOPHYLLINE
  18. ZAFIRLUKAST [Concomitant]
     Active Substance: ZAFIRLUKAST
  19. AMITRIPTYLINE [Concomitant]
     Active Substance: AMITRIPTYLINE
  20. FAMOTIDINE [Concomitant]
     Active Substance: FAMOTIDINE
  21. DICYCLOMINE [Concomitant]
     Active Substance: DICYCLOMINE HYDROCHLORIDE
  22. FENOFIBRATE [Concomitant]
     Active Substance: FENOFIBRATE
  23. HYDRALAZINE [Concomitant]
     Active Substance: HYDRALAZINE HYDROCHLORIDE
     Indication: Hypertension
     Route: 048
  24. PROTOPIC [Concomitant]
     Active Substance: TACROLIMUS
     Indication: Psoriatic arthropathy
     Route: 061
     Dates: start: 2014

REACTIONS (26)
  - Psoriatic arthropathy [Not Recovered/Not Resolved]
  - Lymphoedema [Not Recovered/Not Resolved]
  - Glycosylated haemoglobin increased [Recovered/Resolved]
  - Renal disorder [Recovered/Resolved]
  - Dyspnoea [Unknown]
  - Sleep apnoea syndrome [Not Recovered/Not Resolved]
  - Dyspnoea [Not Recovered/Not Resolved]
  - Wheezing [Not Recovered/Not Resolved]
  - Gait disturbance [Not Recovered/Not Resolved]
  - Ill-defined disorder [Not Recovered/Not Resolved]
  - Peripheral swelling [Not Recovered/Not Resolved]
  - Visual impairment [Not Recovered/Not Resolved]
  - Impaired driving ability [Not Recovered/Not Resolved]
  - Blood glucose increased [Recovered/Resolved]
  - Asthma [Unknown]
  - Hypersomnia [Unknown]
  - Dizziness [Unknown]
  - Productive cough [Unknown]
  - Chest pain [Unknown]
  - Chest discomfort [Unknown]
  - Fibromyalgia [Unknown]
  - Eczema [Unknown]
  - Laboratory test abnormal [Unknown]
  - Exercise tolerance decreased [Unknown]
  - Memory impairment [Unknown]
  - Gout [Unknown]

NARRATIVE: CASE EVENT DATE: 20200101
